FAERS Safety Report 11904651 (Version 1)
Quarter: 2016Q1

REPORT INFORMATION
  Report Type: Spontaneous
  Country: FR (occurrence: FR)
  Receive Date: 20160111
  Receipt Date: 20160111
  Transmission Date: 20160526
  Serious: Yes (Death, Hospitalization)
  Sender: FDA-Public Use
  Company Number: FR-ROCHE-1691765

PATIENT
  Age: 84 Year
  Sex: Male

DRUGS (1)
  1. LUCENTIS [Suspect]
     Active Substance: RANIBIZUMAB
     Indication: AGE-RELATED MACULAR DEGENERATION
     Dosage: RIGHT EYE, RECEIVED DOSE ALSO ON 25/JUN/2015, 23/JUL/2015, 10/SEP/2015, 19/OCT/2015 AND 17/DEC/2015
     Route: 050
     Dates: start: 20150526

REACTIONS (1)
  - Intestinal infarction [Fatal]

NARRATIVE: CASE EVENT DATE: 20151225
